FAERS Safety Report 8904103 (Version 1)
Quarter: 2012Q4

REPORT INFORMATION
  Report Type: 
  Country: US (occurrence: US)
  Receive Date: 20121112
  Receipt Date: 20121112
  Transmission Date: 20130627
  Serious: Yes (Disabling)
  Sender: FDA-Public Use
  Company Number: US-PFIZER INC-2012280263

PATIENT
  Age: 63 Year
  Sex: Female
  Weight: 88.44 kg

DRUGS (7)
  1. LYRICA [Suspect]
     Indication: PAIN IN LEG
     Dosage: 300 mg, 2x/day
     Route: 048
     Dates: start: 2007
  2. LYRICA [Suspect]
     Dosage: 300 mg, 1x/day
     Route: 048
  3. METFORMIN [Concomitant]
     Indication: DIABETES
     Dosage: UNK
  4. LISINOPRIL [Concomitant]
     Indication: BLOOD PRESSURE HIGH
     Dosage: 10 mg, 1x/day
  5. PRAVACHOL [Concomitant]
     Dosage: UNK
  6. NAPROXEN [Concomitant]
     Dosage: UNK
  7. XANAX [Concomitant]
     Dosage: UNK

REACTIONS (3)
  - Ill-defined disorder [Unknown]
  - Inappropriate schedule of drug administration [Unknown]
  - Drug ineffective [Unknown]
